FAERS Safety Report 6701173-8 (Version None)
Quarter: 2010Q2

REPORT INFORMATION
  Report Type: 
  Country: None (occurrence: None)
  Receive Date: 20100428
  Receipt Date: 20100428
  Transmission Date: 20101027
  Serious: Yes (Hospitalization)
  Sender: FDA-Public Use
  Company Number: None

PATIENT
  Age: 44 Year
  Sex: Female
  Weight: 100.6985 kg

DRUGS (1)
  1. LOVASTATIN [Suspect]
     Indication: BLOOD CHOLESTEROL INCREASED
     Dosage: ONE TABLET ONCE A DAY PO
     Route: 048
     Dates: start: 20010323, end: 20100423

REACTIONS (8)
  - ACTIVITIES OF DAILY LIVING IMPAIRED [None]
  - BLOOD POTASSIUM DECREASED [None]
  - CHEST PAIN [None]
  - CONSTIPATION [None]
  - GAIT DISTURBANCE [None]
  - HEADACHE [None]
  - PAIN [None]
  - VOMITING [None]
